FAERS Safety Report 8730941 (Version 2)
Quarter: 2012Q4

REPORT INFORMATION
  Report Type: 
  Country: US (occurrence: None)
  Receive Date: 20120730
  Receipt Date: 20120828
  Transmission Date: 20130627
  Serious: Yes (Other)
  Sender: FDA-Public Use
  Company Number: 2011029598

PATIENT
  Age: 46 Year
  Sex: Female
  Weight: 73.03 kg

DRUGS (12)
  1. HIZENTRA [Suspect]
     Indication: IMMUNODEFICIENCY COMMON VARIABLE
     Dates: start: 20100825
  2. HIZENTRA [Suspect]
     Indication: IMMUNODEFICIENCY COMMON VARIABLE
     Dosage: SEE IMAGE
     Dates: start: 20110817
  3. HIZENTRA [Suspect]
     Indication: IMMUNODEFICIENCY COMMON VARIABLE
     Dosage: (??-Jul-2012; 60 ml 4 sites over 1-2 hours)
     Dates: start: 20120714
  4. HIZENTRA [Suspect]
     Indication: IMMUNODEFICIENCY COMMON VARIABLE
     Dosage: 12 g 1/week, ??-Jul-2012; 60 ml 4 sites over 1-2 hours subcutaneous
  5. CENTRUM (DAILY MULTIVITAMIN) [Concomitant]
  6. XANAX (ALPRAZOLAM [Concomitant]
  7. AMBIEN (ZOLPIDEM TARTRATE) [Concomitant]
  8. LORTAB (LORTAB /01744401/) [Concomitant]
  9. ACETAMINOPHEN (PARACETAMOL) [Concomitant]
  10. DIPHENHYDRAMINE (DIPHENHYDRAMINE) [Concomitant]
  11. L-M-X (LIDOCAINE) [Concomitant]
  12. EPI-PEN (EPINEPHRINE HYDROCHLORIDE) [Concomitant]

REACTIONS (8)
  - Arthralgia [None]
  - Oedema peripheral [None]
  - Chills [None]
  - Urticaria [None]
  - Wheezing [None]
  - Headache [None]
  - Nausea [None]
  - Vomiting [None]
